FAERS Safety Report 18670613 (Version 1)
Quarter: 2020Q4

REPORT INFORMATION
  Report Type: Spontaneous
  Country: US (occurrence: US)
  Receive Date: 20201228
  Receipt Date: 20201228
  Transmission Date: 20210114
  Serious: No
  Sender: FDA-Public Use
  Company Number: US-ASTRAZENECA-2020SF62925

PATIENT
  Sex: Female
  Weight: 64.4 kg

DRUGS (5)
  1. XANAX [Concomitant]
     Active Substance: ALPRAZOLAM
     Indication: SLEEP DISORDER
     Dosage: 4 NIGHTS A WEEK
  2. SYMBICORT [Suspect]
     Active Substance: BUDESONIDE\FORMOTEROL FUMARATE DIHYDRATE
     Indication: ASTHMA
     Dosage: 80/4.5, AS REQUIRED AS REQUIRED
     Route: 055
  3. ADVIL [Concomitant]
     Active Substance: IBUPROFEN
     Dosage: AS REQUIRED
  4. HERBALS [Concomitant]
     Active Substance: HERBALS
     Dosage: SPORADICALLY
  5. FISH OIL [Concomitant]
     Active Substance: FISH OIL
     Indication: NUTRITIONAL SUPPLEMENTATION

REACTIONS (5)
  - Product dose omission issue [Unknown]
  - Osteopenia [Unknown]
  - Intentional product misuse [Unknown]
  - Weight increased [Unknown]
  - Chest discomfort [Unknown]
